FAERS Safety Report 17816957 (Version 1)
Quarter: 2020Q2

REPORT INFORMATION
  Report Type: Spontaneous
  Country: US (occurrence: US)
  Receive Date: 20200522
  Receipt Date: 20200522
  Transmission Date: 20200714
  Serious: No
  Sender: FDA-Public Use
  Company Number: None

PATIENT
  Age: 78 Year
  Sex: Male
  Weight: 75.6 kg

DRUGS (1)
  1. SENSODYNE COMPLETE PROTECTION EXTRA FRESH [Suspect]
     Active Substance: STANNOUS FLUORIDE
     Indication: HYPERAESTHESIA TEETH
     Dosage: ?          QUANTITY:1 APPLICATION;?
     Route: 048

REACTIONS (2)
  - Paranasal sinus discomfort [None]
  - Headache [None]

NARRATIVE: CASE EVENT DATE: 20200521
